FAERS Safety Report 20502922 (Version 1)
Quarter: 2022Q1

REPORT INFORMATION
  Report Type: Spontaneous
  Country: US (occurrence: US)
  Receive Date: 20220222
  Receipt Date: 20220222
  Transmission Date: 20220424
  Serious: No
  Sender: FDA-Public Use
  Company Number: US-ALLERGAN-2120598US

PATIENT

DRUGS (1)
  1. OZURDEX [Suspect]
     Active Substance: DEXAMETHASONE
     Indication: Cyclitis
     Dosage: 0.7 MG, SINGLE
     Route: 031

REACTIONS (2)
  - Off label use [Unknown]
  - Off label use [Unknown]
